FAERS Safety Report 5152713-4 (Version None)
Quarter: 2006Q4

REPORT INFORMATION
  Report Type: 
  Country: None (occurrence: None)
  Receive Date: 20061109
  Receipt Date: 20061027
  Transmission Date: 20070319
  Serious: Yes (Hospitalization, Other)
  Sender: FDA-Public Use
  Company Number: 2006131878

PATIENT
  Age: 79 Year
  Sex: Female
  Weight: 75.7507 kg

DRUGS (10)
  1. LINEZOLID [Suspect]
     Indication: LOCALISED INFECTION
     Dosage: 1200 MG (600 MG, 2 IN 1 D); ORAL
     Route: 048
     Dates: start: 20060905, end: 20060916
  2. LINEZOLID [Suspect]
     Indication: STAPHYLOCOCCAL INFECTION
     Dosage: 1200 MG (600 MG, 2 IN 1 D); ORAL
     Route: 048
     Dates: start: 20060905, end: 20060916
  3. METOPROLOL [Concomitant]
  4. MAGNESIUM [Concomitant]
  5. WARFARIN SODIUM [Concomitant]
  6. LISINOPRIL [Concomitant]
  7. GLYBURIDE [Concomitant]
  8. OMEPRAZOLE [Concomitant]
  9. TRICOR [Concomitant]
  10. EVISTA [Concomitant]

REACTIONS (5)
  - ABASIA [None]
  - ASTHENIA [None]
  - COORDINATION ABNORMAL [None]
  - DEHYDRATION [None]
  - RENAL FAILURE [None]
